FAERS Safety Report 7037477-1 (Version None)
Quarter: 2010Q4

REPORT INFORMATION
  Report Type: 
  Country: None (occurrence: None)
  Receive Date: 20101011
  Receipt Date: 20101005
  Transmission Date: 20110411
  Serious: Yes (Other)
  Sender: FDA-Public Use
  Company Number: A0876396A

PATIENT
  Age: 74 Year
  Sex: Male
  Weight: 79 kg

DRUGS (2)
  1. VOTRIENT [Suspect]
     Indication: PRODUCT USED FOR UNKNOWN INDICATION
     Route: 048
     Dates: start: 20100518
  2. LIPITOR [Suspect]
     Route: 065
     Dates: end: 20100701

REACTIONS (6)
  - BLOOD BILIRUBIN INCREASED [None]
  - CONTUSION [None]
  - DYSGEUSIA [None]
  - FATIGUE [None]
  - HEPATOTOXICITY [None]
  - RASH [None]
